FAERS Safety Report 16891381 (Version 1)
Quarter: 2019Q4

REPORT INFORMATION
  Report Type: Spontaneous
  Country: DE (occurrence: DE)
  Receive Date: 20191007
  Receipt Date: 20191007
  Transmission Date: 20200122
  Serious: Yes (Other)
  Sender: FDA-Public Use
  Company Number: DE-MYLANLABS-2019M1092150

PATIENT
  Age: 24 Year
  Sex: Female

DRUGS (3)
  1. LEPONEX [Suspect]
     Active Substance: CLOZAPINE
     Dosage: 100 MILLIGRAM, QD
     Dates: start: 20070517
  2. LEPONEX [Suspect]
     Active Substance: CLOZAPINE
     Indication: PRODUCT USED FOR UNKNOWN INDICATION
     Dosage: 1.DOSIERUNG: 6,25MG/12,5MG
     Dates: start: 20070515
  3. LEPONEX [Suspect]
     Active Substance: CLOZAPINE
     Dosage: 150 MILLIGRAM, QD
     Dates: start: 20070524

REACTIONS (5)
  - Cyanosis [Unknown]
  - Dizziness [Unknown]
  - Myocarditis [Unknown]
  - Circulatory collapse [Unknown]
  - Tachycardia [Unknown]

NARRATIVE: CASE EVENT DATE: 20070517
